FAERS Safety Report 4444484-1 (Version None)
Quarter: 2004Q3

REPORT INFORMATION
  Report Type: 
  Country: None (occurrence: None)
  Receive Date: 20040902
  Receipt Date: 20040812
  Transmission Date: 20050211
  Serious: Yes (Hospitalization, Other)
  Sender: FDA-Public Use
  Company Number: USA040670273

PATIENT
  Age: 82 Year
  Sex: Female

DRUGS (6)
  1. EVISTA [Suspect]
     Indication: OSTEOPOROSIS
     Dosage: 60 MG/1 DAY
     Dates: start: 20020416
  2. PRENISONE [Concomitant]
  3. ARICEPT [Concomitant]
  4. REMERON [Concomitant]
  5. ATENOLOL [Concomitant]
  6. RHEUMATREX [Concomitant]

REACTIONS (2)
  - FALL [None]
  - HIP FRACTURE [None]
